FAERS Safety Report 24301731 (Version 2)
Quarter: 2024Q4

REPORT INFORMATION
  Report Type: Report from Study
  Country: US (occurrence: US)
  Receive Date: 20240910
  Receipt Date: 20241111
  Transmission Date: 20250114
  Serious: Yes (Hospitalization, Other)
  Sender: NOVARTIS
  Company Number: US-002147023-NVSC2024US178066

PATIENT
  Sex: Male

DRUGS (1)
  1. KESIMPTA [Suspect]
     Active Substance: OFATUMUMAB
     Indication: Product used for unknown indication
     Dosage: UNK
     Route: 065
     Dates: start: 20240816

REACTIONS (8)
  - Pulmonary thrombosis [Unknown]
  - Dyspnoea [Unknown]
  - Hemiparesis [Unknown]
  - Urine odour abnormal [Unknown]
  - Rhinorrhoea [Unknown]
  - Dehydration [Unknown]
  - Wound [Unknown]
  - Fatigue [Unknown]
